FAERS Safety Report 5381160-5 (Version None)
Quarter: 2007Q3

REPORT INFORMATION
  Report Type: 
  Country: None (occurrence: None)
  Receive Date: 20070706
  Receipt Date: 20070626
  Transmission Date: 20080115
  Serious: Yes (Hospitalization, Other)
  Sender: FDA-Public Use
  Company Number: CA-PFIZER INC-2007050071

PATIENT
  Sex: Female
  Weight: 102 kg

DRUGS (8)
  1. CHAMPIX [Suspect]
     Indication: SMOKING CESSATION THERAPY
     Route: 048
     Dates: start: 20070511, end: 20070513
  2. CIPROFLOXACIN [Suspect]
     Indication: URINARY TRACT INFECTION
     Route: 048
     Dates: start: 20070511, end: 20070513
  3. HYDROCHLOROTHIAZIDE [Concomitant]
  4. LIPITOR [Concomitant]
  5. PLAVIX [Concomitant]
  6. ALTACE [Concomitant]
  7. NORVASC [Concomitant]
  8. METFORMIN HCL [Concomitant]

REACTIONS (2)
  - ADRENAL GLAND CANCER METASTATIC [None]
  - MYOCARDIAL INFARCTION [None]
